FAERS Safety Report 9605662 (Version 1)
Quarter: 2013Q4

REPORT INFORMATION
  Report Type: Report from Study
  Country: MX (occurrence: MX)
  Receive Date: 20131008
  Receipt Date: 20131008
  Transmission Date: 20140711
  Serious: Yes (Other)
  Sender: FDA-Public Use
  Company Number: PHHY2013MX112587

PATIENT
  Age: 5 Month
  Sex: Male

DRUGS (2)
  1. TRILEPTAL [Suspect]
     Indication: CONVULSION
     Dosage: UNK UKN (6G/100 ML), UNK
     Route: 048
     Dates: start: 201307
  2. PHENYTOIN [Concomitant]
     Indication: CONVULSION
     Dosage: UNK UKN, UNK
     Dates: start: 201309

REACTIONS (3)
  - Cyanosis [Recovered/Resolved]
  - Pharyngitis [Not Recovered/Not Resolved]
  - Pyrexia [Not Recovered/Not Resolved]
